FAERS Safety Report 8986176 (Version 1)
Quarter: 2012Q4

REPORT INFORMATION
  Report Type: Spontaneous
  Country: US (occurrence: None)
  Receive Date: 20121214
  Receipt Date: 20121214
  Transmission Date: 20130627
  Serious: Yes (Disabling, Other)
  Sender: FDA-Public Use
  Company Number: ACO_33271_2012

PATIENT
  Sex: Male
  Weight: 104.3 kg

DRUGS (2)
  1. AMPYRA (DALFAMPRIDINE) TABLET, 10MG [Suspect]
     Indication: MULTIPLE SCLEROSIS
     Route: 048
  2. TYSABRI (NATALIZUMAB) [Concomitant]

REACTIONS (6)
  - Abasia [None]
  - Movement disorder [None]
  - Muscle spasms [None]
  - Muscle spasticity [None]
  - Wheelchair user [None]
  - Drug ineffective [None]
